FAERS Safety Report 10552054 (Version 4)
Quarter: 2015Q3

REPORT INFORMATION
  Report Type: Spontaneous
  Country: AR (occurrence: AR)
  Receive Date: 20141029
  Receipt Date: 20150911
  Transmission Date: 20151125
  Serious: Yes (Other)
  Sender: FDA-Public Use
  Company Number: AR-AMGEN-ARGSP2014083467

PATIENT
  Age: 56 Year
  Sex: Female

DRUGS (1)
  1. ENBREL [Suspect]
     Active Substance: ETANERCEPT
     Indication: RHEUMATOID ARTHRITIS
     Dosage: 50 MG, WEEKLY
     Route: 058
     Dates: start: 20140325

REACTIONS (8)
  - Purulent discharge [Not Recovered/Not Resolved]
  - Fracture [Recovering/Resolving]
  - Urticaria [Not Recovered/Not Resolved]
  - Pain [Unknown]
  - Fall [Recovering/Resolving]
  - Tooth disorder [Unknown]
  - Oral mucosal blistering [Not Recovered/Not Resolved]
  - Weight increased [Not Recovered/Not Resolved]

NARRATIVE: CASE EVENT DATE: 201403
